FAERS Safety Report 25656561 (Version 2)
Quarter: 2025Q3

REPORT INFORMATION
  Report Type: Spontaneous
  Country: US (occurrence: US)
  Receive Date: 20250807
  Receipt Date: 20250813
  Transmission Date: 20251020
  Serious: Yes (Hospitalization, Other)
  Sender: PFIZER
  Company Number: US-PFIZER INC-202500157607

PATIENT
  Age: 80 Year
  Sex: Female
  Weight: 44.2 kg

DRUGS (18)
  1. ENCORAFENIB [Suspect]
     Active Substance: ENCORAFENIB
     Indication: Non-small cell lung cancer
     Dosage: 300 MG, 1X/DAY
     Route: 048
     Dates: start: 20250501, end: 20250724
  2. BINIMETINIB [Suspect]
     Active Substance: BINIMETINIB
     Indication: Non-small cell lung cancer
     Dosage: 30 MG, 2X/DAY
     Route: 048
     Dates: start: 20250501, end: 20250724
  3. ACETAMINOPHEN [Concomitant]
     Active Substance: ACETAMINOPHEN
  4. MOMETASONE [Concomitant]
     Active Substance: MOMETASONE
  5. ALBUTEROL SULFATE [Concomitant]
     Active Substance: ALBUTEROL SULFATE
  6. OLANZAPINE [Concomitant]
     Active Substance: OLANZAPINE
  7. APIXABAN [Concomitant]
     Active Substance: APIXABAN
  8. ONDANSETRON [Concomitant]
     Active Substance: ONDANSETRON
  9. FUROSEMIDE [Concomitant]
     Active Substance: FUROSEMIDE
  10. POLYETHYLENE GLYCOLS [Concomitant]
     Active Substance: POLYETHYLENE GLYCOLS
  11. GLIPIZIDE [Concomitant]
     Active Substance: GLIPIZIDE
  12. DOCUSATE SODIUM\SENNOSIDES A AND B [Concomitant]
     Active Substance: DOCUSATE SODIUM\SENNOSIDES A AND B
  13. HYDROCHLOROTHIAZIDE [Concomitant]
     Active Substance: HYDROCHLOROTHIAZIDE
  14. TIZANIDINE [Concomitant]
     Active Substance: TIZANIDINE
  15. LANSOPRAZOLE [Concomitant]
     Active Substance: LANSOPRAZOLE
  16. LACTULOSE [Concomitant]
     Active Substance: LACTULOSE
  17. LORAZEPAM [Concomitant]
     Active Substance: LORAZEPAM
  18. LOSARTAN [Concomitant]
     Active Substance: LOSARTAN

REACTIONS (8)
  - Hepatotoxicity [Not Recovered/Not Resolved]
  - Blood creatine phosphokinase increased [Not Recovered/Not Resolved]
  - Cardiac tamponade [Recovered/Resolved with Sequelae]
  - Pericardial effusion [Recovering/Resolving]
  - Neck pain [Not Recovered/Not Resolved]
  - Myositis [Not Recovered/Not Resolved]
  - Immune-mediated myositis [Not Recovered/Not Resolved]
  - Oedema [Unknown]

NARRATIVE: CASE EVENT DATE: 20250101
